FAERS Safety Report 9834384 (Version 1)
Quarter: 2014Q1

REPORT INFORMATION
  Report Type: Spontaneous
  Country: CH (occurrence: CH)
  Receive Date: 20140122
  Receipt Date: 20140122
  Transmission Date: 20141002
  Serious: Yes (Death, Hospitalization)
  Sender: FDA-Public Use
  Company Number: CH-BAYER-2014-007222

PATIENT
  Age: 65 Year
  Sex: Female
  Weight: 49.6 kg

DRUGS (22)
  1. STIVARGA [Suspect]
     Indication: GASTROINTESTINAL STROMAL TUMOUR
     Dosage: 40 MG/DAY
     Route: 048
     Dates: start: 20130703, end: 20130918
  2. STIVARGA [Suspect]
     Indication: GASTROINTESTINAL STROMAL TUMOUR
     Dosage: 40 MG/DAY (AFTER 2 WEEKS OF 80 MG/DAY)
     Dates: start: 20131030
  3. SUTENT [Suspect]
     Indication: GASTROINTESTINAL STROMAL TUMOUR
     Dosage: 50 MG/DAY
     Route: 048
     Dates: start: 201203, end: 201203
  4. GLIVEC [Suspect]
     Indication: GASTROINTESTINAL STROMAL TUMOUR
     Dosage: 100-400 MG/DAY
     Dates: start: 200612, end: 2013
  5. METOLAZONE [Concomitant]
     Dosage: 5 MG, QD
  6. LASIX [Concomitant]
     Dosage: 500 MG, QD
  7. MARCOUMAR [Concomitant]
     Dosage: 3 MG, PRN
     Route: 048
  8. IMODIUM [Concomitant]
     Dosage: 2 MG, PRN
     Route: 048
  9. PANTOZOL [Concomitant]
     Dosage: 40 MG, BID
     Route: 048
  10. ROCALTROL [Concomitant]
     Dosage: 0.25 ?G, TIW
     Route: 048
  11. ARANESP [Concomitant]
     Dosage: 60 ?G (1 PER 10 DAYS)
     Route: 058
  12. BECOZYME [Concomitant]
     Dosage: 1 DF, QD
     Route: 048
  13. CREON [PANCREATIN] [Concomitant]
     Dosage: 40000 (9 PER 1 DAY)
     Route: 048
  14. SMOFKABIVEN [Concomitant]
     Dosage: DAILY DOSE 1 DF
     Route: 042
  15. SUPRADYN [Concomitant]
     Dosage: 1 DF, QD
     Route: 048
  16. BUSCOPAN [Concomitant]
     Dosage: 10 MG, PRN
  17. DUROGESIC [Concomitant]
     Dosage: 1 DF, Q72HR
     Route: 048
  18. ZOFRAN [Concomitant]
     Dosage: 4 MG, PRN
     Route: 060
  19. DAFALGAN [Concomitant]
     Dosage: 1 DF, PRN
  20. HALDOL [Concomitant]
     Dosage: UNK
     Dates: start: 201309, end: 201312
  21. NOVALGIN [Concomitant]
     Dosage: UNK
  22. QUANTALAN [Concomitant]

REACTIONS (9)
  - Abdominal pain [Not Recovered/Not Resolved]
  - Nausea [Not Recovered/Not Resolved]
  - Vomiting [Not Recovered/Not Resolved]
  - Diarrhoea [Not Recovered/Not Resolved]
  - Vertigo [Recovered/Resolved]
  - Back pain [Not Recovered/Not Resolved]
  - Squamous cell carcinoma [Recovered/Resolved]
  - Drug ineffective [Fatal]
  - Bone marrow failure [Recovered/Resolved]
